FAERS Safety Report 21211856 (Version 1)
Quarter: 2022Q3

REPORT INFORMATION
  Report Type: Spontaneous
  Country: US (occurrence: US)
  Receive Date: 20220815
  Receipt Date: 20220815
  Transmission Date: 20221026
  Serious: No
  Sender: FDA-Public Use
  Company Number: US-BAUSCH-BL-2022-019784

PATIENT
  Age: 70 Year
  Sex: Female
  Weight: 59.020 kg

DRUGS (4)
  1. LOTEMAX [Suspect]
     Active Substance: LOTEPREDNOL ETABONATE
     Indication: Laser therapy
     Route: 047
     Dates: start: 20220806, end: 20220807
  2. PREDNISOLONE SODIUM PHOSPHATE [Suspect]
     Active Substance: PREDNISOLONE SODIUM PHOSPHATE
     Indication: Laser therapy
     Route: 047
  3. VYZULTA [Suspect]
     Active Substance: LATANOPROSTENE BUNOD
     Indication: Glaucoma
     Route: 047
  4. ALPHAGAN P [Concomitant]
     Active Substance: BRIMONIDINE TARTRATE

REACTIONS (1)
  - Vision blurred [Unknown]
